FAERS Safety Report 24056864 (Version 1)
Quarter: 2024Q3

REPORT INFORMATION
  Report Type: Spontaneous
  Country: RS (occurrence: RS)
  Receive Date: 20240706
  Receipt Date: 20240706
  Transmission Date: 20241017
  Serious: Yes (Other)
  Sender: ELI LILLY AND CO
  Company Number: RS-Merck Healthcare KGaA-2024034386

PATIENT
  Age: 62 Year
  Sex: Male

DRUGS (1)
  1. ERBITUX [Suspect]
     Active Substance: CETUXIMAB
     Indication: Oropharyngeal squamous cell carcinoma
     Dosage: UNK, UNKNOWN
     Route: 065

REACTIONS (3)
  - Skin cancer [Unknown]
  - Pustule [Unknown]
  - Erythema [Unknown]
